FAERS Safety Report 14857015 (Version 1)
Quarter: 2018Q2

REPORT INFORMATION
  Report Type: Spontaneous
  Country: US (occurrence: US)
  Receive Date: 20180507
  Receipt Date: 20180507
  Transmission Date: 20180711
  Serious: No
  Sender: FDA-Public Use
  Company Number: US-TEIKOKU PHARMA USA-TPU2018-00283

PATIENT
  Sex: Female
  Weight: 62.2 kg

DRUGS (2)
  1. LIDOCAINE PATCH [Suspect]
     Active Substance: LIDOCAINE
     Indication: NEURALGIA
     Dosage: I CUT THEM IN HALF APPLY WHERE IT HURTS ON BACK AROUND L4 L5, FOR 12 HOURS ON 12 OFF.
  2. STEROID EPIDURALS [Suspect]
     Active Substance: UNSPECIFIED INGREDIENT
     Indication: NEURALGIA
     Route: 008

REACTIONS (4)
  - Intervertebral disc protrusion [Unknown]
  - Muscular weakness [Unknown]
  - Back pain [Unknown]
  - Discomfort [Unknown]
